FAERS Safety Report 7552244-8 (Version None)
Quarter: 2011Q2

REPORT INFORMATION
  Report Type: 
  Country: None (occurrence: None)
  Receive Date: 20110616
  Receipt Date: 20031211
  Transmission Date: 20111010
  Serious: Yes (Hospitalization)
  Sender: FDA-Public Use
  Company Number: PHHO2003JP11650

PATIENT
  Sex: Female
  Weight: 42 kg

DRUGS (8)
  1. LOCHOLEST [Suspect]
     Indication: HYPERCHOLESTEROLAEMIA
     Dosage: 20 MG, PER DAY
     Route: 048
     Dates: start: 20000918
  2. PURSENNID [Concomitant]
     Route: 048
     Dates: start: 20030412
  3. ALTAT [Concomitant]
     Dosage: 150 MG / DAY
     Route: 048
  4. HERZER [Concomitant]
     Dates: start: 20000412
  5. ALTAT [Concomitant]
     Dosage: 75 MG/ DAY
     Route: 048
     Dates: start: 19970304
  6. HYTRACIN [Concomitant]
     Dosage: 2 MG
     Dates: start: 19960618
  7. ENALAPRIL MALEATE [Concomitant]
     Dosage: 5 MG
     Route: 048
     Dates: start: 20000918
  8. BALOTEIN [Concomitant]
     Dosage: 20 MG, UNK
     Route: 048
     Dates: start: 19960618

REACTIONS (12)
  - VOMITING [None]
  - MEMORY IMPAIRMENT [None]
  - ABASIA [None]
  - HYPOTENSION [None]
  - DISORIENTATION [None]
  - DEHYDRATION [None]
  - DEMENTIA [None]
  - ABDOMINAL PAIN [None]
  - GRIEF REACTION [None]
  - DUODENAL ULCER [None]
  - DEPRESSED LEVEL OF CONSCIOUSNESS [None]
  - CEREBRAL ATROPHY [None]
